FAERS Safety Report 11668440 (Version 1)
Quarter: 2015Q4

REPORT INFORMATION
  Report Type: Spontaneous
  Country: BR (occurrence: BR)
  Receive Date: 20151027
  Receipt Date: 20151027
  Transmission Date: 20160304
  Serious: Yes (Hospitalization, Other)
  Sender: FDA-Public Use
  Company Number: BR-ELI_LILLY_AND_COMPANY-BR201510005090

PATIENT
  Sex: Female
  Weight: 58 kg

DRUGS (5)
  1. EVISTA [Suspect]
     Active Substance: RALOXIFENE HYDROCHLORIDE
     Indication: OSTEOPOROSIS
     Dosage: 60 MG, QD
     Route: 048
     Dates: start: 2008
  2. CALCIUM CARBONATE AND VITAMIN D [Concomitant]
     Dosage: UNK, UNKNOWN
     Route: 065
  3. DIAZEPAM. [Concomitant]
     Active Substance: DIAZEPAM
     Dosage: 10 MG, QD
     Route: 065
  4. LEXAPRO [Concomitant]
     Active Substance: ESCITALOPRAM OXALATE
     Dosage: UNK, UNKNOWN
     Route: 065
  5. RIVOTRIL [Concomitant]
     Active Substance: CLONAZEPAM
     Dosage: 2 MG, QD
     Route: 065

REACTIONS (8)
  - Wrist fracture [Unknown]
  - Fall [Unknown]
  - Tendon rupture [Unknown]
  - Gastritis [Unknown]
  - Limb asymmetry [Unknown]
  - Flatulence [Unknown]
  - Varicose vein [Unknown]
  - Bone density decreased [Unknown]

NARRATIVE: CASE EVENT DATE: 2012
